FAERS Safety Report 5007353-4 (Version None)
Quarter: 2006Q2

REPORT INFORMATION
  Report Type: 
  Country: None (occurrence: None)
  Receive Date: 20060519
  Receipt Date: 20060519
  Transmission Date: 20061013
  Serious: Yes (Life-Threatening, Disabling, Other)
  Sender: FDA-Public Use
  Company Number: None

PATIENT
  Age: 40 Year
  Sex: Female
  Weight: 86.1834 kg

DRUGS (1)
  1. ADDERALL 20 [Suspect]
     Indication: ATTENTION DEFICIT/HYPERACTIVITY DISORDER
     Dosage: 5 DAILY PO
     Route: 048
     Dates: start: 20010101, end: 20060517

REACTIONS (7)
  - ALCOHOL PROBLEM [None]
  - BANKRUPTCY [None]
  - DIVORCED [None]
  - DRUG DEPENDENCE [None]
  - FEAR [None]
  - INCORRECT DOSE ADMINISTERED [None]
  - LOSS OF EMPLOYMENT [None]
